FAERS Safety Report 9230703 (Version 2)
Quarter: 2013Q2

REPORT INFORMATION
  Report Type: Spontaneous
  Country: TR (occurrence: TR)
  Receive Date: 20130415
  Receipt Date: 20130514
  Transmission Date: 20140414
  Serious: Yes (Other)
  Sender: FDA-Public Use
  Company Number: TR-NOVOPROD-362363

PATIENT
  Age: 34 Year
  Sex: Female
  Weight: 73 kg

DRUGS (2)
  1. NOVORAPID FLEXPEN [Suspect]
     Indication: GESTATIONAL DIABETES
     Dosage: 45 U, QD
     Route: 058
     Dates: start: 20120829
  2. ALFAMET [Concomitant]
     Dosage: 250 MG, TID
     Route: 048
     Dates: start: 201210

REACTIONS (2)
  - HELLP syndrome [Recovered/Resolved]
  - Exposure during pregnancy [Unknown]
